FAERS Safety Report 8936743 (Version 1)
Quarter: 2012Q4

REPORT INFORMATION
  Report Type: 
  Country: GB (occurrence: GB)
  Receive Date: 20121130
  Receipt Date: 20121130
  Transmission Date: 20130627
  Serious: Yes (Hospitalization)
  Sender: FDA-Public Use
  Company Number: GB-PFIZER INC-2012296669

PATIENT
  Age: 27 Year
  Sex: Female
  Weight: 82 kg

DRUGS (9)
  1. GENOTROPIN [Suspect]
     Dosage: 1.8 mg, 1x/day, 7 injections/week
     Route: 058
     Dates: start: 20061024
  2. HYDROCORTISONE [Concomitant]
     Indication: ACTH DECREASED
     Dosage: UNK
     Dates: start: 20030106
  3. LOESTRIN [Concomitant]
     Indication: CONTRACEPTION
     Dosage: UNK
     Dates: start: 20031006
  4. LOESTRIN [Concomitant]
     Indication: MENSTRUAL DISORDER
  5. THYROXINE [Concomitant]
     Indication: TSH DECREASED
     Dosage: UNK
     Dates: start: 20031006
  6. THYROXINE [Concomitant]
     Indication: PRIMARY HYPOTHYROIDISM
  7. ALVERINE [Concomitant]
     Indication: GASTROINTESTINAL DISORDER
     Dosage: UNK
     Dates: start: 20061011
  8. CITALOPRAM [Concomitant]
     Indication: DEPRESSIVE ILLNESS
     Dosage: UNK
     Dates: start: 20070501
  9. CITALOPRAM [Concomitant]
     Indication: PANIC DISORDER

REACTIONS (2)
  - Gastritis [Unknown]
  - Oesophagitis [Unknown]
